FAERS Safety Report 5420834-4 (Version None)
Quarter: 2007Q3

REPORT INFORMATION
  Report Type: 
  Country: None (occurrence: None)
  Receive Date: 20070821
  Receipt Date: 20070809
  Transmission Date: 20080115
  Serious: Yes (Other)
  Sender: FDA-Public Use
  Company Number: US-ROCHE-510986

PATIENT
  Age: 81 Year
  Sex: Female

DRUGS (7)
  1. BONIVA [Suspect]
     Indication: DRUG USE FOR UNKNOWN INDICATION
     Route: 065
     Dates: start: 20070501
  2. PLAVIX [Concomitant]
  3. ZOCOR [Concomitant]
  4. VITAMIN [Concomitant]
     Dosage: REPORTED AS: DAILY VITAMIN
  5. GLUCOSAMINE [Concomitant]
  6. OSCAL [Concomitant]
  7. SYNTHROID [Concomitant]

REACTIONS (1)
  - CROHN'S DISEASE [None]
